FAERS Safety Report 6341896-6 (Version None)
Quarter: 2009Q3

REPORT INFORMATION
  Report Type: 
  Country: None (occurrence: None)
  Receive Date: 20090904
  Receipt Date: 20090803
  Transmission Date: 20100115
  Serious: Yes (Other)
  Sender: FDA-Public Use
  Company Number: CA-PFIZER INC-2009215969

PATIENT
  Age: 50 Year

DRUGS (10)
  1. LYRICA [Suspect]
     Indication: FIBROMYALGIA
     Dosage: 300 MG, 2X/DAY
     Dates: start: 20090101
  2. LYRICA [Suspect]
     Dosage: 150 MG, 2X/DAY
     Dates: start: 20090301
  3. CYMBALTA [Concomitant]
     Dosage: UNK
  4. QUETIAPINE [Concomitant]
     Indication: DEPRESSION
     Dosage: 300 UNK, 1X/DAY, AT NIGHT
  5. CARBAMAZEPINE [Concomitant]
     Indication: DEPRESSION
     Dosage: 200 MG X2, AT NIGHT
  6. AMITRIPTYLINE [Concomitant]
     Indication: DEPRESSION
     Dosage: 50 MG X2, AT NIGHT
  7. VALIUM [Concomitant]
     Dosage: UNK
  8. FLUNARIZINE [Concomitant]
     Indication: HEADACHE
     Dosage: 5 MG, 2X/DAY, AT NIGHT
  9. APO-AMITRIPTYLINE [Concomitant]
  10. CARBAMAZEPINE [Concomitant]
     Dosage: UNK

REACTIONS (3)
  - DRY SKIN [None]
  - PSORIASIS [None]
  - SKIN EXFOLIATION [None]
